FAERS Safety Report 9120222 (Version 4)
Quarter: 2013Q3

REPORT INFORMATION
  Report Type: Spontaneous
  Country: IE (occurrence: IE)
  Receive Date: 20130226
  Receipt Date: 20130722
  Transmission Date: 20140515
  Serious: Yes (Hospitalization, Other)
  Sender: FDA-Public Use
  Company Number: IE-BRISTOL-MYERS SQUIBB COMPANY-17396292

PATIENT
  Age: 56 Year
  Sex: Female

DRUGS (1)
  1. YERVOY [Suspect]
     Indication: METASTATIC MALIGNANT MELANOMA
     Dosage: 216 MG
     Route: 042
     Dates: start: 20130122, end: 20130305

REACTIONS (4)
  - Pneumonitis [Recovered/Resolved]
  - Colitis [Recovered/Resolved]
  - Hypophysitis [Recovering/Resolving]
  - Goitre [Unknown]
